FAERS Safety Report 20606024 (Version 1)
Quarter: 2022Q1

REPORT INFORMATION
  Report Type: Spontaneous
  Country: US (occurrence: US)
  Receive Date: 20220317
  Receipt Date: 20220317
  Transmission Date: 20220423
  Serious: No
  Sender: FDA-Public Use
  Company Number: US-UNITED THERAPEUTICS-UNT-2022-005771

PATIENT
  Age: 43 Year
  Sex: Female

DRUGS (2)
  1. REMODULIN [Suspect]
     Active Substance: TREPROSTINIL
     Indication: Pulmonary arterial hypertension
     Dosage: UNK UNK, CONTINUING
     Route: 058
     Dates: start: 20210506
  2. REMODULIN [Suspect]
     Active Substance: TREPROSTINIL
     Dosage: 0.0407 ?G/KG, CONTINUING
     Route: 058

REACTIONS (3)
  - Infusion site extravasation [Recovering/Resolving]
  - Dyspnoea [Recovering/Resolving]
  - Infusion site pain [Recovering/Resolving]

NARRATIVE: CASE EVENT DATE: 20220313
